FAERS Safety Report 19888413 (Version 1)
Quarter: 2021Q3

REPORT INFORMATION
  Report Type: Spontaneous
  Country: US (occurrence: US)
  Receive Date: 20210927
  Receipt Date: 20210927
  Transmission Date: 20211014
  Serious: Yes (Hospitalization)
  Sender: FDA-Public Use
  Company Number: None

PATIENT
  Age: 63 Year
  Sex: Male
  Weight: 78.5 kg

DRUGS (2)
  1. RIVAROXABAN [Suspect]
     Active Substance: RIVAROXABAN
     Indication: DEEP VEIN THROMBOSIS
     Route: 048
     Dates: start: 20210330, end: 20210710
  2. ASPIRIN 81 MG DAILY [Concomitant]
     Active Substance: ASPIRIN

REACTIONS (5)
  - Haematemesis [None]
  - Syncope [None]
  - Subarachnoid haemorrhage [None]
  - Hypertensive emergency [None]
  - Fall [None]

NARRATIVE: CASE EVENT DATE: 20210710
